FAERS Safety Report 6772763-1 (Version None)
Quarter: 2010Q2

REPORT INFORMATION
  Report Type: 
  Country: None (occurrence: None)
  Receive Date: 20100616
  Receipt Date: 20100602
  Transmission Date: 20101027
  Serious: Yes (Other)
  Sender: FDA-Public Use
  Company Number: US-BRISTOL-MYERS SQUIBB COMPANY-15149958

PATIENT
  Age: 48 Year
  Sex: Female
  Weight: 82 kg

DRUGS (3)
  1. CORGARD [Suspect]
     Dosage: APPROXIMATELY 1980
     Route: 048
     Dates: start: 19800101
  2. ASPIRIN [Concomitant]
  3. HYZAAR [Concomitant]

REACTIONS (3)
  - DIABETES MELLITUS [None]
  - GASTROINTESTINAL DISORDER [None]
  - WEIGHT INCREASED [None]
